FAERS Safety Report 5634880-9 (Version None)
Quarter: 2008Q1

REPORT INFORMATION
  Report Type: 
  Country: None (occurrence: None)
  Receive Date: 20080222
  Receipt Date: 20080213
  Transmission Date: 20080703
  Serious: Yes (Other)
  Sender: FDA-Public Use
  Company Number: MY-ASTRAZENECA-2008AP00995

PATIENT
  Age: 942 Month
  Sex: Male

DRUGS (1)
  1. GOSERELIN [Suspect]
     Indication: PROSTATE CANCER
     Route: 042
     Dates: start: 20060519, end: 20070201

REACTIONS (1)
  - PANCYTOPENIA [None]
